FAERS Safety Report 6213425-9 (Version None)
Quarter: 2009Q2

REPORT INFORMATION
  Report Type: 
  Country: None (occurrence: None)
  Receive Date: 20090603
  Receipt Date: 20090529
  Transmission Date: 20091009
  Serious: Yes (Hospitalization)
  Sender: FDA-Public Use
  Company Number: PHHO2009DE06709

PATIENT
  Sex: Male

DRUGS (3)
  1. CYCLOSPORINE [Suspect]
     Indication: LIVER TRANSPLANT
     Dosage: 220 MG
     Route: 048
     Dates: start: 20080319, end: 20090312
  2. NO TREATMENT RECEIVED NOMED [Suspect]
  3. BASILIXIMAB [Suspect]
     Indication: LIVER TRANSPLANT

REACTIONS (2)
  - DIABETES MELLITUS INADEQUATE CONTROL [None]
  - RENAL FAILURE [None]
